FAERS Safety Report 19888547 (Version 1)
Quarter: 2021Q3

REPORT INFORMATION
  Report Type: Spontaneous
  Country: US (occurrence: US)
  Receive Date: 20210927
  Receipt Date: 20210927
  Transmission Date: 20211014
  Serious: Yes (Other)
  Sender: FDA-Public Use
  Company Number: None

PATIENT
  Age: 46 Year
  Sex: Male
  Weight: 128.25 kg

DRUGS (16)
  1. CASIRIVIMAB?IMDEVIMAB [Suspect]
     Active Substance: CASIRIVIMAB\IMDEVIMAB
     Indication: COVID-19
     Dosage: ?          OTHER FREQUENCY:ONCE;?
     Route: 041
     Dates: start: 20210917, end: 20210917
  2. QUETIAPINE. [Concomitant]
     Active Substance: QUETIAPINE
     Dates: start: 20200511
  3. TIZANIDINE. [Concomitant]
     Active Substance: TIZANIDINE
     Dates: start: 20150714
  4. DICLOFENAC [Concomitant]
     Active Substance: DICLOFENAC
     Dates: start: 20210604
  5. METFORMIN [Concomitant]
     Active Substance: METFORMIN HYDROCHLORIDE
     Dates: start: 20200603
  6. LIDOCAINE 5% [Concomitant]
     Active Substance: LIDOCAINE
     Dates: start: 20210920
  7. EMPAGLIFLOZIN [Concomitant]
     Active Substance: EMPAGLIFLOZIN
     Dates: start: 20200811
  8. GABAPENTIN. [Concomitant]
     Active Substance: GABAPENTIN
     Dates: start: 20160713
  9. ASPIRIN. [Concomitant]
     Active Substance: ASPIRIN
     Dates: start: 20190810
  10. SILDENAFIL. [Concomitant]
     Active Substance: SILDENAFIL
     Dates: start: 20120518
  11. INSULIN GLARGINE [Concomitant]
     Active Substance: INSULIN GLARGINE
     Dates: start: 20200603
  12. CPAP [Concomitant]
     Active Substance: DEVICE
     Dates: start: 20190312
  13. LOSARTAN?HYDROCHLOROTHIAZIDE [Concomitant]
     Active Substance: HYDROCHLOROTHIAZIDE\LOSARTAN
     Dates: start: 20190705
  14. PANTOPRAZOLE SODIUM. [Concomitant]
     Active Substance: PANTOPRAZOLE SODIUM
     Dates: start: 20150921
  15. POTASSIUM CHLORIDE. [Concomitant]
     Active Substance: POTASSIUM CHLORIDE
     Dates: start: 20210306
  16. SERTRALINE [Concomitant]
     Active Substance: SERTRALINE HYDROCHLORIDE
     Dates: start: 20170427

REACTIONS (4)
  - Back pain [None]
  - Paranasal sinus discomfort [None]
  - Cough [None]
  - Headache [None]

NARRATIVE: CASE EVENT DATE: 20210919
